FAERS Safety Report 24138592 (Version 1)
Quarter: 2024Q3

REPORT INFORMATION
  Report Type: Spontaneous
  Country: US (occurrence: US)
  Receive Date: 20240725
  Receipt Date: 20240725
  Transmission Date: 20241016
  Serious: Yes (Other)
  Sender: TEVA
  Company Number: US-TEVA-VS-3222686

PATIENT
  Age: 31 Year
  Sex: Male

DRUGS (5)
  1. DOXORUBICIN [Suspect]
     Active Substance: DOXORUBICIN
     Indication: Ewing^s sarcoma
     Route: 065
     Dates: start: 2002, end: 2002
  2. CYCLOPHOSPHAMIDE [Suspect]
     Active Substance: CYCLOPHOSPHAMIDE
     Indication: Ewing^s sarcoma
     Route: 065
     Dates: start: 2002, end: 2002
  3. ETOPOSIDE [Suspect]
     Active Substance: ETOPOSIDE
     Indication: Ewing^s sarcoma
     Route: 065
     Dates: start: 2002, end: 2002
  4. VINCRISTINE [Suspect]
     Active Substance: VINCRISTINE
     Indication: Ewing^s sarcoma
     Route: 065
     Dates: start: 2002, end: 2002
  5. IFOSFAMIDE [Suspect]
     Active Substance: IFOSFAMIDE
     Indication: Ewing^s sarcoma
     Route: 065
     Dates: start: 2002, end: 2002

REACTIONS (1)
  - Pleuroparenchymal fibroelastosis [Recovering/Resolving]
